FAERS Safety Report 17436537 (Version 2)
Quarter: 2020Q1

REPORT INFORMATION
  Report Type: Spontaneous
  Country: CH (occurrence: CH)
  Receive Date: 20200219
  Receipt Date: 20200221
  Transmission Date: 20200409
  Serious: No
  Sender: FDA-Public Use
  Company Number: CH-ASTRAZENECA-2020SE15046

PATIENT
  Age: 27 Year
  Sex: Female
  Weight: 60 kg

DRUGS (10)
  1. SYMBICORT [Concomitant]
     Active Substance: BUDESONIDE\FORMOTEROL FUMARATE DIHYDRATE
     Dosage: 1200-36/DAY
  2. MELIANE [Concomitant]
     Active Substance: ETHINYL ESTRADIOL\GESTODENE
     Dosage: 21
  3. AKITA-BUDENID [Concomitant]
     Dates: start: 20200116, end: 20200123
  4. SPIRIVA [Concomitant]
     Active Substance: TIOTROPIUM BROMIDE MONOHYDRATE
     Dates: start: 20200103
  5. AKNEFUG [Concomitant]
     Dosage: 5 PERCENT
     Dates: start: 20200110
  6. ALVESCO [Concomitant]
     Active Substance: CICLESONIDE
     Dates: start: 20200103
  7. VENTOLIN [Concomitant]
     Active Substance: ALBUTEROL SULFATE
  8. AVAMYS [Concomitant]
     Active Substance: FLUTICASONE FUROATE
     Dates: start: 20200103
  9. FASENRA [Suspect]
     Active Substance: BENRALIZUMAB
     Indication: ASTHMA
     Route: 058
     Dates: start: 20190822
  10. MONTELUKAST [Concomitant]
     Active Substance: MONTELUKAST SODIUM

REACTIONS (8)
  - Peripheral swelling [Recovered/Resolved]
  - Fatigue [Recovered/Resolved]
  - Dysstasia [Unknown]
  - Nausea [Unknown]
  - Hypoaesthesia [Recovered/Resolved]
  - Dizziness [Recovered/Resolved]
  - Back pain [Recovering/Resolving]
  - Feeling hot [Unknown]

NARRATIVE: CASE EVENT DATE: 20200113
